FAERS Safety Report 20351140 (Version 2)
Quarter: 2022Q1

REPORT INFORMATION
  Report Type: Report from Study
  Country: IT (occurrence: IT)
  Receive Date: 20220119
  Receipt Date: 20220127
  Transmission Date: 20220424
  Serious: Yes (Other)
  Sender: FDA-Public Use
  Company Number: IT-GLAXOSMITHKLINE-IT2022EME006941

PATIENT
  Age: 64 Year
  Sex: Female

DRUGS (4)
  1. NIRAPARIB [Suspect]
     Active Substance: NIRAPARIB
     Indication: Ovarian cancer
     Dosage: UNK
     Route: 048
     Dates: start: 20210521
  2. CARBOPLATIN + PACLITAXEL [Concomitant]
     Dosage: 175 MG/SQM G 1/21 FOR 4 CYCLES
  3. BROMAZEPAM [Concomitant]
     Active Substance: BROMAZEPAM
     Dosage: 8 DF, QD, (8 DROPS IN THE EVENING)
  4. LEVOSULPIRIDE [Concomitant]
     Active Substance: LEVOSULPIRIDE
     Dosage: 15 DF, TID, (15 DROPS 3 TIMES DAILY)

REACTIONS (2)
  - Malignant neoplasm progression [Unknown]
  - Lymphadenopathy [Unknown]

NARRATIVE: CASE EVENT DATE: 20211222
